FAERS Safety Report 13156481 (Version 1)
Quarter: 2017Q1

REPORT INFORMATION
  Report Type: Spontaneous
  Country: TW (occurrence: TW)
  Receive Date: 20170126
  Receipt Date: 20170126
  Transmission Date: 20170428
  Serious: Yes (Other)
  Sender: FDA-Public Use
  Company Number: TW-VERNALIS THERAPEUTICS, INC.-2017VRN00002

PATIENT

DRUGS (1)
  1. CODEINE [Suspect]
     Active Substance: CODEINE
     Indication: RESPIRATORY DISORDER
     Route: 065

REACTIONS (1)
  - Dyspnoea [Unknown]
